FAERS Safety Report 6528307-2 (Version None)
Quarter: 2010Q1

REPORT INFORMATION
  Report Type: 
  Country: None (occurrence: None)
  Receive Date: 20100106
  Receipt Date: 20091228
  Transmission Date: 20100710
  Serious: Yes (Other)
  Sender: FDA-Public Use
  Company Number: PHEH2009US18466

PATIENT
  Sex: Female

DRUGS (5)
  1. RECLAST [Suspect]
     Dosage: UNK
     Dates: start: 20081101
  2. CALCIUM [Concomitant]
  3. VITAMIN D [Concomitant]
  4. RYTHMOL [Concomitant]
  5. PRILOSEC [Concomitant]

REACTIONS (4)
  - ABASIA [None]
  - DRUG INEFFECTIVE [None]
  - HIP FRACTURE [None]
  - WALKING AID USER [None]
